FAERS Safety Report 16860623 (Version 1)
Quarter: 2019Q3

REPORT INFORMATION
  Report Type: Report from Study
  Country: None (occurrence: US)
  Receive Date: 20190927
  Receipt Date: 20190927
  Transmission Date: 20191005
  Serious: Yes (Hospitalization, Other)
  Sender: FDA-Public Use
  Company Number: US-ABBVIE-19K-163-2942903-00

PATIENT
  Age: 56 Year
  Sex: Male

DRUGS (2)
  1. HUMIRA [Suspect]
     Active Substance: ADALIMUMAB
     Indication: RHEUMATOID ARTHRITIS
     Dosage: FREQUENCY - OTHER
     Route: 058
     Dates: start: 201802, end: 201905
  2. HUMIRA [Suspect]
     Active Substance: ADALIMUMAB
     Dosage: FREQUENCY - OTHER
     Route: 058
     Dates: start: 2019

REACTIONS (2)
  - Rheumatoid nodule [Unknown]
  - Rheumatoid arthritis [Unknown]

NARRATIVE: CASE EVENT DATE: 2019
